FAERS Safety Report 8578379 (Version 2)
Quarter: 2012Q4

REPORT INFORMATION
  Report Type: 
  Country: CA (occurrence: CA)
  Receive Date: 20120524
  Receipt Date: 20120831
  Transmission Date: 20130627
  Serious: Yes (Other)
  Sender: FDA-Public Use
  Company Number: CA-PFIZER INC-2012123558

PATIENT
  Age: 74 Year
  Sex: Male

DRUGS (27)
  1. ALTACE [Suspect]
     Indication: HYPERTENSION
     Dosage: 10 mg, daily (At bedtime)
     Route: 048
     Dates: start: 20100827, end: 20110630
  2. XATRAL [Suspect]
     Indication: URINARY TRACT DISORDER
     Dosage: 10 mg, daily at night
     Route: 048
     Dates: end: 20120515
  3. XATRAL [Suspect]
     Indication: BENIGN PROSTATIC HYPERPLASIA
  4. LANTUS [Suspect]
     Indication: TYPE 2 DIABETES MELLITUS
     Dosage: 76 IU daily,(36 IU in the morning and 40 IU at bedtime)
     Route: 058
     Dates: start: 20100630, end: 20110630
  5. AVALIDE [Suspect]
     Indication: HYPERTENSION
     Dosage: 1 DF, daily
     Route: 048
     Dates: start: 20100827, end: 20110630
  6. TESTIM [Suspect]
     Indication: HORMONE REPLACEMENT THERAPY
     Dosage: UNK
     Route: 061
     Dates: start: 201107, end: 20111212
  7. NOVORAPID [Concomitant]
     Indication: DIABETES MELLITUS
     Dosage: UNK
     Dates: start: 2007
  8. AVODART [Concomitant]
     Indication: URINARY TRACT DISORDER
     Dosage: UNK
     Dates: start: 2008, end: 20120515
  9. ATENOLOL [Concomitant]
     Indication: HYPERTENSION
     Dosage: UNK
     Dates: start: 2009
  10. CLONIDINE [Concomitant]
     Indication: HYPERTENSION
     Dosage: UNK
     Dates: start: 2009
  11. AMLODIPINE [Concomitant]
     Indication: HYPERTENSION
     Dosage: UNK
     Dates: start: 2009
  12. CELEBREX [Concomitant]
     Dosage: UNK
     Dates: start: 20101202
  13. DIPROSONE [Concomitant]
     Dosage: UNK
     Dates: start: 20101229
  14. VENTOLIN [Concomitant]
     Dosage: UNK
     Dates: start: 20101029, end: 20110430
  15. ADVAIR DISKUS [Concomitant]
     Dosage: UNK
     Dates: start: 20101229, end: 20110430
  16. ALENDRONATE SODIUM [Concomitant]
     Dosage: UNK
     Dates: start: 20101029
  17. UREMOL HC [Concomitant]
     Dosage: UNK
     Dates: start: 20100828
  18. METFORMIN [Concomitant]
     Dosage: UNK
     Dates: start: 20100827, end: 20110630
  19. ASAPHEN [Concomitant]
     Dosage: UNK
     Dates: start: 20100827, end: 20110630
  20. SIMVASTATIN [Concomitant]
     Dosage: UNK
     Dates: start: 20100827, end: 20110630
  21. KETODERM [Concomitant]
     Dosage: UNK
     Dates: start: 20101229
  22. CALCIUM [Concomitant]
     Dosage: UNK
     Dates: start: 20100301, end: 20110205
  23. VITAMIN D [Concomitant]
     Dosage: UNK
     Dates: start: 20100301, end: 20110205
  24. ZOVIRAX [Concomitant]
     Dosage: UNK
     Dates: start: 20101126
  25. GLUCAGON [Concomitant]
     Dosage: UNK
     Dates: start: 20101101
  26. OMEPRAZOLE [Concomitant]
     Dosage: UNK
     Dates: start: 20100827, end: 20110630
  27. MUPIROCIN [Concomitant]
     Dosage: UNK
     Dates: start: 20101229

REACTIONS (2)
  - Prostate cancer [Not Recovered/Not Resolved]
  - Drug administration error [Unknown]
